FAERS Safety Report 7422836-5 (Version None)
Quarter: 2011Q2

REPORT INFORMATION
  Report Type: 
  Country: None (occurrence: None)
  Receive Date: 20110419
  Receipt Date: 20090125
  Transmission Date: 20111010
  Serious: Yes (Hospitalization, Other)
  Sender: FDA-Public Use
  Company Number: US-BAYER-200911493NA

PATIENT
  Age: 54 Year
  Sex: Female
  Weight: 58.957 kg

DRUGS (15)
  1. PLAVIX [Concomitant]
     Dosage: 75 MG, QD
     Route: 048
  2. ALTACE [Concomitant]
     Dosage: 10 MG, BID
     Route: 048
     Dates: start: 19830101, end: 20050101
  3. LASIX [Concomitant]
     Dosage: 40 MG, QD
  4. PLAQUENIL [Concomitant]
     Dosage: 200 MG, BID
     Route: 048
  5. NEURONTIN [Concomitant]
     Dosage: 300 MG, BID
     Route: 048
  6. ELAVIL [Concomitant]
     Dosage: 25 MG, QD
     Route: 048
  7. TRASYLOL [Suspect]
     Indication: CORONARY ARTERY BYPASS
     Dosage: 2 MU, UNK
     Route: 042
     Dates: start: 20021019
  8. REGLAN [Concomitant]
     Dosage: 10 MG, QID
     Route: 048
  9. HYDROCHLOROTHIAZIDE [Concomitant]
     Dosage: 200 MG, BID
  10. CAPOTEN [Concomitant]
     Dosage: UNK
     Dates: start: 19830101, end: 20050101
  11. ACCUPRIL [Concomitant]
     Dosage: UNK
     Dates: start: 19830101, end: 20050101
  12. TOPROL-XL [Concomitant]
     Dosage: 100 MG, QD
     Route: 048
  13. COREG [Concomitant]
     Dosage: UNK
     Dates: start: 19830101, end: 20050101
  14. IMDUR [Concomitant]
     Dosage: 30 MG, QD
     Route: 048
  15. LIPITOR [Concomitant]
     Dosage: 20 MG, HS
     Route: 048

REACTIONS (12)
  - PAIN [None]
  - MULTI-ORGAN FAILURE [None]
  - UNEVALUABLE EVENT [None]
  - RENAL INJURY [None]
  - INJURY [None]
  - FEAR [None]
  - STRESS [None]
  - ANHEDONIA [None]
  - RENAL IMPAIRMENT [None]
  - EMOTIONAL DISTRESS [None]
  - ANXIETY [None]
  - RENAL FAILURE [None]
